FAERS Safety Report 9371064 (Version 1)
Quarter: 2013Q2

REPORT INFORMATION
  Report Type: Not Available
  Country: US (occurrence: US)
  Receive Date: 20130627
  Receipt Date: 20130627
  Transmission Date: 20140414
  Serious: Yes (Hospitalization)
  Sender: FDA-Public Use
  Company Number: US-LUPIN PHARMACEUTICALS INC.-E2B_00000989

PATIENT
  Age: 1 Month
  Sex: Male
  Weight: 3.63 kg

DRUGS (1)
  1. ESCITALOPRAM [Suspect]
     Indication: POSTPARTUM DEPRESSION
     Route: 063
     Dates: start: 20130524, end: 20130606

REACTIONS (6)
  - Faeces discoloured [Recovered/Resolved]
  - Irritability [Recovered/Resolved]
  - Diarrhoea [Not Recovered/Not Resolved]
  - Somnolence [Recovered/Resolved]
  - Eye movement disorder [Recovered/Resolved]
  - Neonatal respiratory distress syndrome [Recovered/Resolved]
